FAERS Safety Report 10076365 (Version 1)
Quarter: 2014Q2

REPORT INFORMATION
  Report Type: Spontaneous
  Country: US (occurrence: US)
  Receive Date: 20140414
  Receipt Date: 20140414
  Transmission Date: 20141212
  Serious: No
  Sender: FDA-Public Use
  Company Number: US-009507513-1403USA014417

PATIENT
  Sex: Male

DRUGS (5)
  1. CLARITIN CHEWABLE TABLETS [Suspect]
     Indication: MALAISE
     Dosage: 5 MG, ONCE
     Route: 048
     Dates: start: 20140320
  2. CLARITIN CHEWABLE TABLETS [Suspect]
     Indication: HYPERSENSITIVITY
  3. CLARITIN CHEWABLE TABLETS [Suspect]
     Indication: NASAL CONGESTION
  4. CLARITIN CHEWABLE TABLETS [Suspect]
     Indication: SNEEZING
  5. CLARITIN CHEWABLE TABLETS [Suspect]
     Indication: EYE PRURITUS

REACTIONS (2)
  - Ocular hyperaemia [Unknown]
  - Therapeutic response changed [Unknown]
